FAERS Safety Report 6045744-3 (Version None)
Quarter: 2009Q1

REPORT INFORMATION
  Report Type: 
  Country: None (occurrence: None)
  Receive Date: 20090121
  Receipt Date: 20090109
  Transmission Date: 20090719
  Serious: Yes (Hospitalization)
  Sender: FDA-Public Use
  Company Number: JP-PFIZER INC-2009154911

PATIENT

DRUGS (3)
  1. SOLANAX [Suspect]
     Indication: PANIC DISORDER
     Route: 048
  2. DOGMATYL [Suspect]
     Indication: PANIC DISORDER
     Route: 048
  3. ALL OTHER THERAPEUTIC PRODUCTS [Suspect]
     Indication: PANIC DISORDER
     Route: 048

REACTIONS (1)
  - HEPATITIS ACUTE [None]
